FAERS Safety Report 8625542-4 (Version None)
Quarter: 2012Q3

REPORT INFORMATION
  Report Type: 
  Country: None (occurrence: None)
  Receive Date: 20120827
  Receipt Date: 20120822
  Transmission Date: 20120928
  Serious: Yes (Death)
  Sender: FDA-Public Use
  Company Number: FR-ROCHE-1097976

PATIENT
  Sex: Male

DRUGS (18)
  1. ALBUMIN (HUMAN) [Suspect]
     Indication: PRODUCT USED FOR UNKNOWN INDICATION
     Route: 042
     Dates: end: 20120306
  2. BACTRIM DS [Suspect]
     Indication: PROPHYLAXIS
     Route: 048
     Dates: end: 20120405
  3. SOLU-MEDROL [Suspect]
     Indication: IMMUNOSUPPRESSION
     Route: 042
  4. ZOLPIDEM [Suspect]
     Indication: INSOMNIA
     Route: 048
     Dates: end: 20120318
  5. EFFEXOR [Suspect]
     Indication: PRODUCT USED FOR UNKNOWN INDICATION
     Route: 048
     Dates: start: 20120313, end: 20120322
  6. VFEND [Suspect]
     Indication: PROPHYLAXIS
     Route: 042
  7. SANDIMMUNE [Suspect]
     Indication: PROPHYLAXIS
     Route: 042
     Dates: start: 20120123, end: 20120404
  8. PLITICAN [Suspect]
     Indication: PROPHYLAXIS
     Route: 042
     Dates: start: 20120314, end: 20120319
  9. TIORFAN [Suspect]
     Indication: PROPHYLAXIS
     Route: 048
     Dates: end: 20120425
  10. NICARDIPINE HCL [Suspect]
     Indication: HYPERTENSION
     Route: 048
     Dates: end: 20120415
  11. PHENOXYMETHYL PENICILLIN [Suspect]
     Indication: PROPHYLAXIS
     Route: 048
     Dates: end: 20120322
  12. TRANXENE [Suspect]
     Indication: ANXIETY
     Route: 048
     Dates: start: 20120313, end: 20120316
  13. FOLIC ACID [Suspect]
     Indication: VITAMIN B12 DEFICIENCY
     Dates: end: 20120405
  14. VALGANCICLOVIR [Suspect]
     Indication: PROPHYLAXIS
     Route: 048
     Dates: start: 20120310, end: 20120316
  15. LEVOTHYROXINE SODIUM [Suspect]
     Indication: PRODUCT USED FOR UNKNOWN INDICATION
     Route: 042
  16. DELURSAN [Suspect]
     Indication: CHOLESTASIS
     Route: 048
  17. OMEPRAZOLE [Suspect]
     Indication: PROPHYLAXIS
     Route: 042
  18. HEPARIN CALCIUM [Suspect]
     Indication: PROPHYLAXIS
     Route: 042
     Dates: end: 20120321

REACTIONS (1)
  - THROMBOTIC MICROANGIOPATHY [None]
